FAERS Safety Report 9837847 (Version 1)
Quarter: 2014Q1

REPORT INFORMATION
  Report Type: Spontaneous
  Country: US (occurrence: US)
  Receive Date: 20140123
  Receipt Date: 20140123
  Transmission Date: 20141002
  Serious: No
  Sender: FDA-Public Use
  Company Number: US-009507513-1401USA010450

PATIENT
  Age: 29 Year
  Sex: Female
  Weight: 55.33 kg

DRUGS (2)
  1. NUVARING [Suspect]
     Indication: MENSTRUAL CYCLE MANAGEMENT
     Dosage: 1 RING THREE WEEKS IN ONE WEEK OUT
     Route: 067
  2. ZOLOFT [Concomitant]
     Dosage: UNK

REACTIONS (1)
  - Menorrhagia [Unknown]
